FAERS Safety Report 8091132-8 (Version None)
Quarter: 2012Q1

REPORT INFORMATION
  Report Type: 
  Country: None (occurrence: None)
  Receive Date: 20120129
  Receipt Date: 20110920
  Transmission Date: 20120608
  Serious: No
  Sender: FDA-Public Use
  Company Number: US-ABBOTT-11P-163-0856554-00

PATIENT
  Age: 65 Year
  Sex: Female

DRUGS (16)
  1. CA 500 + VIT D [Concomitant]
     Indication: PRODUCT USED FOR UNKNOWN INDICATION
     Dosage: 3 DAILY
  2. SINGULAIR [Concomitant]
     Indication: PRODUCT USED FOR UNKNOWN INDICATION
     Dosage: AT BEDTIME
  3. ROBINUL FORTE LUBRICATING EYE DROPS [Concomitant]
     Indication: PRODUCT USED FOR UNKNOWN INDICATION
     Dosage: 1, TWICE DAILY, EACH EYE
  4. HUMIRA [Suspect]
     Indication: CROHN'S DISEASE
     Dates: start: 20110528
  5. CLARITIN XR [Concomitant]
     Indication: ASTHMA
  6. NEURONTIN [Concomitant]
     Indication: PRODUCT USED FOR UNKNOWN INDICATION
  7. PENTASA [Concomitant]
     Indication: PRODUCT USED FOR UNKNOWN INDICATION
  8. RESTASIS [Concomitant]
     Indication: PRODUCT USED FOR UNKNOWN INDICATION
  9. WELCHOL [Concomitant]
     Indication: PRODUCT USED FOR UNKNOWN INDICATION
     Dosage: 3 IN THE MORNING, 3 AT NIGHT
  10. CYMBALTA [Concomitant]
     Indication: PRODUCT USED FOR UNKNOWN INDICATION
  11. FEOSOL [Concomitant]
     Indication: PRODUCT USED FOR UNKNOWN INDICATION
     Dosage: 3 DAILY
  12. KEPPRA [Concomitant]
     Indication: PRODUCT USED FOR UNKNOWN INDICATION
  13. VENTOLIN [Concomitant]
     Indication: ASTHMA
  14. PROTONICS [Concomitant]
     Indication: GASTROOESOPHAGEAL REFLUX DISEASE
  15. ADVAIR DISKUS 100/50 [Concomitant]
     Indication: PRODUCT USED FOR UNKNOWN INDICATION
     Dosage: 500/50, TWICE DAILY
  16. KETOROLAC TROMETHAMINE [Concomitant]
     Indication: PRODUCT USED FOR UNKNOWN INDICATION
     Dosage: EACH EYE, IN THE MORNING

REACTIONS (1)
  - DIARRHOEA [None]
